FAERS Safety Report 8572767-2 (Version None)
Quarter: 2012Q3

REPORT INFORMATION
  Report Type: 
  Country: None (occurrence: None)
  Receive Date: 20120806
  Receipt Date: 20120727
  Transmission Date: 20120928
  Serious: Yes (Hospitalization)
  Sender: FDA-Public Use
  Company Number: GB-ASTRAZENECA-2012SE53620

PATIENT
  Age: 22001 Day
  Sex: Male
  Weight: 60.4 kg

DRUGS (2)
  1. VANDETANIB [Suspect]
     Indication: ADENOCARCINOMA PANCREAS
     Route: 048
     Dates: start: 20120713, end: 20120715
  2. GEMCITABINE HYDROCHLORIDE [Suspect]
     Indication: ADENOCARCINOMA PANCREAS
     Route: 042
     Dates: start: 20120713, end: 20120715

REACTIONS (1)
  - LOWER RESPIRATORY TRACT INFECTION [None]
